FAERS Safety Report 17423771 (Version 1)
Quarter: 2020Q1

REPORT INFORMATION
  Report Type: Report from Study
  Country: ES (occurrence: ES)
  Receive Date: 20200217
  Receipt Date: 20200217
  Transmission Date: 20200409
  Serious: Yes (Hospitalization)
  Sender: FDA-Public Use
  Company Number: ES-TEVA-2020-ES-1185956

PATIENT
  Age: 75 Year
  Sex: Female

DRUGS (5)
  1. PAUSEDAL 25 MG, COMPRIMIDOS , 30 COMPRIMIDOS [Concomitant]
     Indication: DYSPEPSIA
     Dosage: 25MG
     Route: 048
     Dates: start: 20180827
  2. ENALAPRIL + HIDROCLOROTIAZIDA [Suspect]
     Active Substance: ENALAPRIL MALEATE\HYDROCHLOROTHIAZIDE
     Indication: HYPERTENSION
     Dosage: 20MG
     Route: 048
     Dates: start: 20190415, end: 20190827
  3. PARACETAMOL (12A) [Concomitant]
     Active Substance: ACETAMINOPHEN
     Indication: PAIN
     Dosage: 1 GRAM
     Route: 048
     Dates: start: 20180924
  4. OMEPRAZOL (2141A) [Concomitant]
     Active Substance: OMEPRAZOLE
     Indication: GASTRITIS PROPHYLAXIS
     Dosage: 20MG
     Route: 048
     Dates: start: 201312
  5. DEPAKINE (VALPROIC ACID) [Interacting]
     Active Substance: VALPROIC ACID
     Indication: STATUS EPILEPTICUS
     Dosage: 1000MG
     Route: 048
     Dates: start: 20190412, end: 20190901

REACTIONS (2)
  - Hyponatraemia [Recovered/Resolved]
  - Drug interaction [Unknown]

NARRATIVE: CASE EVENT DATE: 20190424
